FAERS Safety Report 13465382 (Version 2)
Quarter: 2017Q2

REPORT INFORMATION
  Report Type: Report from Study
  Country: US (occurrence: US)
  Receive Date: 20170421
  Receipt Date: 20170511
  Transmission Date: 20170830
  Serious: Yes (Other)
  Sender: FDA-Public Use
  Company Number: US-AMGEN-USASL2017058248

PATIENT
  Age: 56 Year
  Sex: Male

DRUGS (1)
  1. ENBREL [Suspect]
     Active Substance: ETANERCEPT
     Indication: ANKYLOSING SPONDYLITIS
     Dosage: UNK
     Route: 065

REACTIONS (12)
  - Spinal deformity [Unknown]
  - Spinal fusion surgery [Unknown]
  - Malaise [Unknown]
  - Back disorder [Unknown]
  - Musculoskeletal stiffness [Not Recovered/Not Resolved]
  - Immune system disorder [Unknown]
  - Mobility decreased [Not Recovered/Not Resolved]
  - Viral upper respiratory tract infection [Unknown]
  - Ankylosing spondylitis [Unknown]
  - Sleep disorder [Unknown]
  - Fatigue [Unknown]
  - Headache [Unknown]

NARRATIVE: CASE EVENT DATE: 201703
